FAERS Safety Report 18742996 (Version 1)
Quarter: 2021Q1

REPORT INFORMATION
  Report Type: Spontaneous
  Country: US (occurrence: US)
  Receive Date: 20210114
  Receipt Date: 20210114
  Transmission Date: 20210419
  Serious: No
  Sender: FDA-Public Use
  Company Number: US-NOVOPROD-752063

PATIENT
  Sex: Female

DRUGS (1)
  1. OZEMPIC [Suspect]
     Active Substance: SEMAGLUTIDE
     Indication: WEIGHT DECREASED
     Dosage: UNK
     Route: 058

REACTIONS (7)
  - Unevaluable event [Unknown]
  - Panic attack [Unknown]
  - Dehydration [Unknown]
  - Abdominal pain upper [Unknown]
  - Dry mouth [Unknown]
  - Diarrhoea [Unknown]
  - Off label use [Unknown]
